FAERS Safety Report 9251760 (Version 2)
Quarter: 2014Q1

REPORT INFORMATION
  Report Type: Spontaneous
  Country: US (occurrence: US)
  Receive Date: 20130424
  Receipt Date: 20140109
  Transmission Date: 20141002
  Serious: Yes (Hospitalization)
  Sender: FDA-Public Use
  Company Number: US-ASTRAZENECA-2013SE27408

PATIENT
  Age: 49 Year
  Sex: Male
  Weight: 83.9 kg

DRUGS (19)
  1. NEXIUM [Suspect]
     Indication: GASTROOESOPHAGEAL REFLUX DISEASE
     Route: 048
     Dates: start: 2005
  2. NEXIUM [Suspect]
     Indication: DYSPEPSIA
     Route: 048
     Dates: start: 2005
  3. NEXIUM [Suspect]
     Indication: HIATUS HERNIA
     Route: 048
     Dates: start: 2005
  4. PRILOSEC OTC [Suspect]
     Indication: GASTROOESOPHAGEAL REFLUX DISEASE
     Route: 048
  5. PREVACID [Suspect]
     Indication: GASTROOESOPHAGEAL REFLUX DISEASE
     Route: 065
  6. TUMS [Concomitant]
     Dosage: TAKEN AS NEEDED, TAKEN ALMOST EVERYDAY
  7. ALKA SELTZER [Concomitant]
     Dosage: TAKEN AS NEEDED, TAKEN ALMOST EVERYDAY
  8. MILK OF MAGNESIA [Concomitant]
     Dosage: TAKEN AS NEEDED, TAKEN ALMOST EVERYDAY
  9. PEPTO BISMOL [Concomitant]
     Dosage: TAKEN AS NEEDED, TAKEN ALMOST EVERYDAY
  10. ROLAIDS [Concomitant]
     Dosage: TAKEN AS NEEDED, TAKEN ALMOST EVERYDAY
  11. MYLANTA [Concomitant]
     Dosage: TAKEN AS NEEDED, TAKEN ALMOST EVERYDAY
  12. PERCOCET [Concomitant]
     Indication: PAIN
     Dosage: 4 TIMES DAILY
  13. VICODEN [Concomitant]
     Indication: PAIN
     Dosage: 4 TIMES DAILY
  14. AMBIEN [Concomitant]
     Indication: SLEEP DISORDER
     Dosage: ONCE NIGHTLY
  15. VITAMIN D [Concomitant]
     Indication: ASTHENIA
     Dosage: ONCE A WEEK
  16. ALENDRONATE [Concomitant]
  17. DIPHENOXYLATE [Concomitant]
     Indication: DIARRHOEA
     Dosage: AS NEEDED
  18. HYDROCODONE [Concomitant]
     Dates: start: 20091208
  19. ZOLPIDEM [Concomitant]
     Dates: start: 20101028

REACTIONS (9)
  - Upper limb fracture [Unknown]
  - Hand fracture [Unknown]
  - Foot fracture [Unknown]
  - Osteoporosis [Unknown]
  - Bone disorder [Unknown]
  - Calcium deficiency [Unknown]
  - Vitamin D deficiency [Unknown]
  - Androgen deficiency [Unknown]
  - Diarrhoea [Unknown]
